FAERS Safety Report 9212584 (Version 1)
Quarter: 2013Q2

REPORT INFORMATION
  Report Type: Spontaneous
  Country: CH (occurrence: CH)
  Receive Date: 20130405
  Receipt Date: 20130405
  Transmission Date: 20140414
  Serious: Yes (Life-Threatening)
  Sender: FDA-Public Use
  Company Number: CH-GE HEALTHCARE MEDICAL DIAGNOSTICS-VISP-PR-1303S-0500

PATIENT
  Age: 57 Year
  Sex: Female

DRUGS (2)
  1. VISIPAQUE [Suspect]
     Indication: HEPATIC CANCER
     Dosage: DOSE NOT REPORTED
     Route: 042
     Dates: start: 20130320, end: 20130320
  2. VISIPAQUE [Suspect]
     Dates: start: 20130320, end: 20130320

REACTIONS (6)
  - Rash erythematous [Recovered/Resolved]
  - Altered state of consciousness [Recovered/Resolved]
  - Respiratory arrest [Recovered/Resolved]
  - Dyspnoea [Recovered/Resolved]
  - Hypersensitivity [Recovered/Resolved]
  - Anaphylactic shock [Recovered/Resolved]
